FAERS Safety Report 19310988 (Version 4)
Quarter: 2021Q3

REPORT INFORMATION
  Report Type: Report from Study
  Country: None (occurrence: US)
  Receive Date: 20210526
  Receipt Date: 20210902
  Transmission Date: 20211014
  Serious: Yes (Hospitalization)
  Sender: FDA-Public Use
  Company Number: US-ABBVIE-21K-163-3896926-00

PATIENT
  Age: 76 Year
  Sex: Male

DRUGS (1)
  1. IMBRUVICA [Suspect]
     Active Substance: IBRUTINIB
     Indication: CHRONIC LYMPHOCYTIC LEUKAEMIA
     Route: 048
     Dates: start: 202012

REACTIONS (10)
  - Blood blister [Unknown]
  - Pneumonia [Not Recovered/Not Resolved]
  - Haemorrhage [Unknown]
  - Atrial fibrillation [Unknown]
  - Contusion [Not Recovered/Not Resolved]
  - Headache [Unknown]
  - Skin atrophy [Unknown]
  - Increased tendency to bruise [Not Recovered/Not Resolved]
  - Immunosuppression [Not Recovered/Not Resolved]
  - Peripheral swelling [Unknown]

NARRATIVE: CASE EVENT DATE: 2020
